FAERS Safety Report 24966848 (Version 1)
Quarter: 2025Q1

REPORT INFORMATION
  Report Type: Spontaneous
  Country: CN (occurrence: CN)
  Receive Date: 20250213
  Receipt Date: 20250213
  Transmission Date: 20250408
  Serious: Yes (Other)
  Sender: NOVARTIS
  Company Number: CN-002147023-NVSC2025CN023576

PATIENT
  Age: 77 Year
  Sex: Female
  Weight: 51 kg

DRUGS (10)
  1. TRAMETINIB [Suspect]
     Active Substance: TRAMETINIB
     Indication: Targeted cancer therapy
     Dosage: 2 MG, QD
     Route: 048
     Dates: start: 20231207, end: 20231209
  2. TRAMETINIB [Suspect]
     Active Substance: TRAMETINIB
     Indication: Malignant melanoma
     Dosage: 2 MG, QD
     Route: 065
  3. TRAMETINIB [Suspect]
     Active Substance: TRAMETINIB
     Dosage: 2 MG, QD
     Route: 065
  4. TRAMETINIB [Suspect]
     Active Substance: TRAMETINIB
     Route: 065
  5. TRAMETINIB [Suspect]
     Active Substance: TRAMETINIB
     Dosage: 2 MG, QD
     Route: 065
  6. DABRAFENIB [Suspect]
     Active Substance: DABRAFENIB
     Indication: Targeted cancer therapy
     Dosage: 150 MG, BID
     Route: 048
     Dates: start: 20231207, end: 20231209
  7. DABRAFENIB [Suspect]
     Active Substance: DABRAFENIB
     Indication: Malignant melanoma
     Dosage: 75 MG, BID
     Route: 065
  8. DABRAFENIB [Suspect]
     Active Substance: DABRAFENIB
     Route: 065
  9. DABRAFENIB [Suspect]
     Active Substance: DABRAFENIB
     Route: 065
  10. DABRAFENIB [Suspect]
     Active Substance: DABRAFENIB
     Dosage: 75 MG, BID
     Route: 065

REACTIONS (5)
  - Panniculitis [Recovering/Resolving]
  - Pyrexia [Recovered/Resolved]
  - Rash [Unknown]
  - Pyrexia [Unknown]
  - Induration [Recovered/Resolved]

NARRATIVE: CASE EVENT DATE: 20231209
